FAERS Safety Report 6077428-X (Version None)
Quarter: 2009Q1

REPORT INFORMATION
  Report Type: 
  Country: None (occurrence: None)
  Receive Date: 20090213
  Receipt Date: 20090209
  Transmission Date: 20090719
  Serious: Yes (Life-Threatening)
  Sender: FDA-Public Use
  Company Number: JP-JNJFOC-20090202551

PATIENT
  Age: 69 Year
  Sex: Male

DRUGS (18)
  1. RISPERDAL [Suspect]
     Indication: DRUG USE FOR UNKNOWN INDICATION
     Route: 048
  2. HALOPERIDOL [Suspect]
     Indication: DRUG USE FOR UNKNOWN INDICATION
     Route: 041
  3. GRAMALIL [Suspect]
     Indication: DRUG USE FOR UNKNOWN INDICATION
     Route: 048
  4. ETIZOLAM [Concomitant]
     Route: 048
  5. HYDROXYZINE PAMOATE [Concomitant]
     Route: 042
  6. ZOLPIDEM TARTRATE [Concomitant]
     Route: 048
  7. CEFTRIAXONE SODIUM [Concomitant]
     Route: 065
  8. SULBACTAM SODIUM/AMPICILLIN SODIUM [Concomitant]
     Route: 065
  9. VANCOMYCIN HCL [Concomitant]
     Route: 065
  10. DORIPENEM HYDRATE [Concomitant]
     Route: 065
  11. TEICOPLANIN [Concomitant]
     Route: 065
  12. FLOMOXEF SODIUM [Concomitant]
     Route: 065
  13. HEPARIN AND PREPARATIONS [Concomitant]
     Route: 065
  14. HEPARIN AND PREPARATIONS [Concomitant]
     Route: 065
  15. WARFARIN SODIUM [Concomitant]
     Route: 048
  16. WARFARIN SODIUM [Concomitant]
     Route: 048
  17. EDARAVONE [Concomitant]
     Route: 065
  18. LANSOPRAZOLE [Concomitant]
     Route: 065

REACTIONS (2)
  - CARDIO-RESPIRATORY ARREST [None]
  - TORSADE DE POINTES [None]
